FAERS Safety Report 4424370-3 (Version None)
Quarter: 2004Q3

REPORT INFORMATION
  Report Type: 
  Country: None (occurrence: None)
  Receive Date: 20040810
  Receipt Date: 20040810
  Transmission Date: 20050211
  Serious: Yes (Hospitalization)
  Sender: FDA-Public Use
  Company Number: None

PATIENT
  Sex: Male
  Weight: 58 kg

DRUGS (4)
  1. IRINOTECAN [Suspect]
     Indication: RECTAL CANCER
     Dosage: 124 MG DAYS 1,8Q IV
     Route: 042
     Dates: start: 20040624, end: 20040722
  2. XELODA [Suspect]
     Indication: RECTAL CANCER
     Dosage: 1650 MG BID DAYS 1-14Q ORAL
     Route: 048
     Dates: start: 20040624, end: 20040728
  3. CELECOXIB [Concomitant]
  4. PREVACID [Concomitant]

REACTIONS (9)
  - ABDOMINAL PAIN [None]
  - ASTHENIA [None]
  - AZOTAEMIA [None]
  - DEHYDRATION [None]
  - ILEUS PARALYTIC [None]
  - NAUSEA [None]
  - RENAL FAILURE ACUTE [None]
  - VOMITING [None]
  - WEIGHT DECREASED [None]
